FAERS Safety Report 4738736-5 (Version None)
Quarter: 2005Q3

REPORT INFORMATION
  Report Type: 
  Country: None (occurrence: None)
  Receive Date: 20050804
  Receipt Date: 20050726
  Transmission Date: 20060218
  Serious: Yes (Hospitalization)
  Sender: FDA-Public Use
  Company Number: 2005-02042

PATIENT
  Age: 77 Year
  Sex: Female

DRUGS (4)
  1. OXYTROL [Suspect]
     Indication: HYPERTONIC BLADDER
     Dosage: 1 PATCH, 2/WEEK, TRANSDERMAL
     Route: 062
     Dates: start: 20050506, end: 20050515
  2. WARFARIN SODIUM [Concomitant]
  3. SOTALOL HCL [Concomitant]
  4. THIAZIDE DIURETIC [Concomitant]

REACTIONS (7)
  - DIZZINESS [None]
  - FATIGUE [None]
  - HEADACHE [None]
  - LEUKAEMIA [None]
  - LEUKOPENIA [None]
  - NAUSEA [None]
  - NEUTROPHIL COUNT DECREASED [None]
